FAERS Safety Report 18550851 (Version 1)
Quarter: 2020Q4

REPORT INFORMATION
  Report Type: Spontaneous
  Country: DE (occurrence: DE)
  Receive Date: 20201126
  Receipt Date: 20201126
  Transmission Date: 20210114
  Serious: Yes (Hospitalization)
  Sender: FDA-Public Use
  Company Number: DE-SA-2020SA331647

PATIENT

DRUGS (6)
  1. OXALIPLATIN. [Suspect]
     Active Substance: OXALIPLATIN
     Dosage: LAST 03082020
     Route: 065
     Dates: end: 20200803
  2. PANTOPRAZOLE [Concomitant]
     Active Substance: PANTOPRAZOLE
     Dosage: 40 MG, 1-0-0-0
     Route: 065
  3. DOCETAXEL. [Suspect]
     Active Substance: DOCETAXEL
     Dosage: LAST 03082020
     Route: 065
     Dates: end: 20200803
  4. FLUOROURACIL. [Suspect]
     Active Substance: FLUOROURACIL
     Dosage: LAST 03082020
     Route: 065
     Dates: end: 20200803
  5. MCP [Concomitant]
     Active Substance: METOCLOPRAMIDE HYDROCHLORIDE
     Dosage: 10 MG, 2X
     Route: 065
  6. FOLINSAEURE [Suspect]
     Active Substance: LEUCOVORIN
     Dosage: LAST 03082020
     Route: 065
     Dates: end: 20200803

REACTIONS (7)
  - Nausea [Unknown]
  - Flatulence [Unknown]
  - Eructation [Unknown]
  - Abdominal distension [Unknown]
  - Vomiting [Unknown]
  - Condition aggravated [Unknown]
  - General physical health deterioration [Unknown]
